FAERS Safety Report 24528965 (Version 3)
Quarter: 2024Q4

REPORT INFORMATION
  Report Type: Spontaneous
  Country: US (occurrence: US)
  Receive Date: 20241021
  Receipt Date: 20241025
  Transmission Date: 20250115
  Serious: Yes (Other)
  Sender: PFIZER
  Company Number: US-PFIZER INC-PV202400134459

PATIENT
  Age: 76 Year
  Sex: Male
  Weight: 97.506 kg

DRUGS (2)
  1. VYNDAMAX [Suspect]
     Active Substance: TAFAMIDIS
     Indication: Acquired ATTR amyloidosis
     Dosage: ONE 61 MG CAPSULE ONCE DAILY
     Route: 048
  2. METHOTREXATE [Concomitant]
     Active Substance: METHOTREXATE
     Dosage: UNK

REACTIONS (8)
  - Pericardial effusion [Unknown]
  - Cardiac tamponade [Unknown]
  - Heart failure with preserved ejection fraction [Unknown]
  - Atrial flutter [Unknown]
  - Hip arthroplasty [Unknown]
  - Joint effusion [Unknown]
  - Left ventricular hypertrophy [Unknown]
  - Knee arthroplasty [Unknown]
